FAERS Safety Report 18576301 (Version 1)
Quarter: 2020Q4

REPORT INFORMATION
  Report Type: Report from Study
  Country: GB (occurrence: GB)
  Receive Date: 20201203
  Receipt Date: 20201203
  Transmission Date: 20210114
  Serious: Yes (Other)
  Sender: FDA-Public Use
  Company Number: GB-IPSEN BIOPHARMACEUTICALS, INC.-2020-09395

PATIENT
  Sex: Female

DRUGS (1)
  1. SOMATULINE AUTOGEL [Suspect]
     Active Substance: LANREOTIDE ACETATE
     Indication: NEUROENDOCRINE TUMOUR
     Dosage: 120 MG/ 0.5 ML
     Route: 065

REACTIONS (7)
  - Fatigue [Unknown]
  - Vitamin D decreased [Unknown]
  - Neoplasm progression [Unknown]
  - Off label use [Unknown]
  - Gastrointestinal carcinoma [Unknown]
  - Arthralgia [Unknown]
  - Diarrhoea [Unknown]
